FAERS Safety Report 13965001 (Version 2)
Quarter: 2017Q4

REPORT INFORMATION
  Report Type: Report from Study
  Country: US (occurrence: US)
  Receive Date: 20170913
  Receipt Date: 20171117
  Transmission Date: 20180320
  Serious: Yes (Death, Other)
  Sender: FDA-Public Use
  Company Number: US-BAYER-2017-165053

PATIENT
  Age: 75 Year
  Sex: Male

DRUGS (3)
  1. NEXAVAR [Suspect]
     Active Substance: SORAFENIB
     Indication: METASTASES TO LUNG
  2. NEXAVAR [Suspect]
     Active Substance: SORAFENIB
     Indication: HEPATOBLASTOMA
  3. NEXAVAR [Suspect]
     Active Substance: SORAFENIB
     Indication: HEPATOCELLULAR CARCINOMA
     Dosage: 200 MG, BID (ON EMPTY STOMACH 1 HOUR BEFORE OR 2 HOURS AFTER MEALS)
     Route: 048
     Dates: start: 20170421, end: 20171027

REACTIONS (3)
  - Abnormal loss of weight [None]
  - Neoplasm malignant [Fatal]
  - Off label use [None]

NARRATIVE: CASE EVENT DATE: 201707
